FAERS Safety Report 5415912-X (Version None)
Quarter: 2007Q3

REPORT INFORMATION
  Report Type: 
  Country: None (occurrence: None)
  Receive Date: 20070815
  Receipt Date: 20070802
  Transmission Date: 20080115
  Serious: No
  Sender: FDA-Public Use
  Company Number: AU-ELI_LILLY_AND_COMPANY-AU200708000266

PATIENT
  Age: 68 Year
  Sex: Female

DRUGS (2)
  1. ZYPREXA [Suspect]
     Dosage: 5 MG, DAILY (1/D)
     Dates: start: 20060101, end: 20070701
  2. ATENOLOL [Concomitant]
     Dosage: UNK, UNKNOWN

REACTIONS (1)
  - WHITE BLOOD CELL COUNT DECREASED [None]
